FAERS Safety Report 9463118 (Version 2)
Quarter: 2013Q3

REPORT INFORMATION
  Report Type: Spontaneous
  Country: JP (occurrence: JP)
  Receive Date: 20130816
  Receipt Date: 20130816
  Transmission Date: 20140515
  Serious: Yes (Hospitalization)
  Sender: FDA-Public Use
  Company Number: JP-B.I. PHARMACEUTICALS,INC./RIDGEFIELD-2013-BI-24321NB

PATIENT
  Age: 7 Decade
  Sex: Female

DRUGS (10)
  1. MICARDIS [Suspect]
     Dosage: 40 MG
     Route: 048
     Dates: start: 2011
  2. EUGLUCON / GLIBENCLAMIDE [Concomitant]
     Dosage: 3.75 MG
     Route: 048
  3. LANIRAPID / METILDIGOXIN [Concomitant]
     Dosage: 0.1 MG
     Route: 048
  4. WARFARIN / WARFARIN POTASSIUM [Concomitant]
     Dosage: 3 MG
     Route: 048
  5. ADALAT-CR / NIFEDIPINE [Concomitant]
     Dosage: 20 MG
     Route: 048
  6. MEVALOTIN / PRAVASTATIN SODIUM [Concomitant]
     Dosage: 10 MG
     Route: 048
  7. SEIBULE / MIGLITOL [Concomitant]
     Dosage: 150 MG
     Route: 048
  8. LASIX / FUROSEMIDE [Concomitant]
     Dosage: 20 MG
     Route: 048
  9. DIART / AZOSEMIDE [Concomitant]
     Dosage: 60 MG
     Route: 048
  10. ARTIST / CARVEDILOL [Concomitant]
     Dosage: 10 MG
     Route: 048

REACTIONS (2)
  - Blood pressure increased [Unknown]
  - Hypoaldosteronism [Not Recovered/Not Resolved]
